FAERS Safety Report 6828323-7 (Version None)
Quarter: 2010Q3

REPORT INFORMATION
  Report Type: 
  Country: None (occurrence: None)
  Receive Date: 20100709
  Receipt Date: 20070202
  Transmission Date: 20110219
  Serious: No
  Sender: FDA-Public Use
  Company Number: US-PFIZER INC-2007009926

PATIENT
  Sex: Female
  Weight: 66.68 kg

DRUGS (12)
  1. CHANTIX [Suspect]
     Indication: SMOKING CESSATION THERAPY
     Dates: start: 20070118
  2. DEPAKOTE [Concomitant]
  3. GEODON [Concomitant]
  4. LUNESTA [Concomitant]
  5. REMERON [Concomitant]
  6. MONTELUKAST SODIUM [Concomitant]
  7. IBANDRONATE SODIUM [Concomitant]
  8. ATIVAN [Concomitant]
  9. CALCIUM CARBONATE/ERGOCALCIFEROL [Concomitant]
  10. GLUCOSAMINE W/CHONDROITIN SULFATES [Concomitant]
  11. VITAMINS WITH MINERALS [Concomitant]
  12. VITAMIN E [Concomitant]

REACTIONS (3)
  - DYSPEPSIA [None]
  - FATIGUE [None]
  - NAUSEA [None]
